FAERS Safety Report 4732608-8 (Version None)
Quarter: 2005Q3

REPORT INFORMATION
  Report Type: 
  Country: None (occurrence: None)
  Receive Date: 20050801
  Receipt Date: 20050715
  Transmission Date: 20060218
  Serious: Yes (Disabling)
  Sender: FDA-Public Use
  Company Number: M-05-242

PATIENT
  Sex: Male
  Weight: 81.6475 kg

DRUGS (11)
  1. PREVALITE [Suspect]
     Indication: INTESTINAL RESECTION
     Dosage: 1 PACKET QD PO
     Route: 048
  2. PREVALITE [Suspect]
     Indication: POST PROCEDURAL DIARRHOEA
     Dosage: 1 PACKET QD PO
     Route: 048
  3. KEPPRA [Concomitant]
  4. RANITIDINE [Concomitant]
  5. POTASSIUM AND MAGNESIUM ASPARATE [Concomitant]
  6. CULTURELLE (LACTOBACILLUS) [Concomitant]
  7. VITAMIN B12 INJECTION [Concomitant]
  8. VITAMIN K  SUPPLEMENT [Concomitant]
  9. NIACIN [Concomitant]
  10. MAGNESIUM [Concomitant]
  11. POTASSIUM CHLORIDE [Concomitant]

REACTIONS (4)
  - CEREBRAL HAEMORRHAGE [None]
  - CEREBROVASCULAR DISORDER [None]
  - HAEMATOMA [None]
  - VITAMIN K DEFICIENCY [None]
